FAERS Safety Report 9175506 (Version 1)
Quarter: 2013Q1

REPORT INFORMATION
  Report Type: Spontaneous
  Country: US (occurrence: US)
  Receive Date: 20130320
  Receipt Date: 20130320
  Transmission Date: 20140127
  Serious: Yes (Other)
  Sender: FDA-Public Use
  Company Number: US-PFIZER INC-2013088178

PATIENT
  Age: 46 Year
  Sex: Female
  Weight: 71.2 kg

DRUGS (2)
  1. ZITHROMAX [Suspect]
     Dosage: UNK
     Route: 048
     Dates: start: 20111028, end: 2011
  2. ATENOLOL [Concomitant]
     Dosage: 25 MG, UNK

REACTIONS (3)
  - Heart rate increased [Unknown]
  - Blood potassium decreased [Unknown]
  - Blood magnesium decreased [Unknown]
